FAERS Safety Report 5168901-7 (Version None)
Quarter: 2006Q4

REPORT INFORMATION
  Report Type: 
  Country: None (occurrence: None)
  Receive Date: 20061206
  Receipt Date: 20061206
  Transmission Date: 20070319
  Serious: Yes (Hospitalization)
  Sender: FDA-Public Use
  Company Number: None

PATIENT
  Age: 59 Year
  Sex: Male

DRUGS (1)
  1. PHOSPHOSODA FLAVOR NOT SPECIFIED (SODIUM PHOSPHATE DIBASIC/SODIUM PHOS [Suspect]
     Indication: COLONOSCOPY
     Dosage: PO
     Route: 048
     Dates: start: 20061017, end: 20061017

REACTIONS (4)
  - BIOPSY SITE UNSPECIFIED ABNORMAL [None]
  - COLONOSCOPY ABNORMAL [None]
  - INFLAMMATION [None]
  - LARGE INTESTINAL ULCER [None]
